FAERS Safety Report 6405950-2 (Version None)
Quarter: 2009Q4

REPORT INFORMATION
  Report Type: 
  Country: None (occurrence: None)
  Receive Date: 20091019
  Receipt Date: 20091007
  Transmission Date: 20100525
  Serious: Yes (Other)
  Sender: FDA-Public Use
  Company Number: US-ELI_LILLY_AND_COMPANY-US200807002477

PATIENT
  Sex: Male

DRUGS (3)
  1. CIALIS [Suspect]
     Dosage: 20 MG, UNK
     Route: 065
     Dates: start: 20080701
  2. CIALIS [Suspect]
     Dosage: 20 MG, MONTHLY (1/M)
     Route: 065
  3. CIALIS [Suspect]
     Dosage: UNK, OTHER
     Route: 065

REACTIONS (7)
  - DYSPEPSIA [None]
  - INTENTIONAL DRUG MISUSE [None]
  - PAINFUL ERECTION [None]
  - PENIS DISORDER [None]
  - PEYRONIE'S DISEASE [None]
  - PRIAPISM [None]
  - THERAPEUTIC RESPONSE DECREASED [None]
